FAERS Safety Report 9210767 (Version 2)
Quarter: 2014Q1

REPORT INFORMATION
  Report Type: Spontaneous
  Country: US (occurrence: US)
  Receive Date: 20130404
  Receipt Date: 20140115
  Transmission Date: 20141002
  Serious: Yes (Other)
  Sender: FDA-Public Use
  Company Number: US-BAYER-2013-040277

PATIENT
  Age: 19 Year
  Sex: Female

DRUGS (12)
  1. YAZ [Suspect]
     Dosage: UNK
     Dates: start: 200906, end: 200909
  2. YASMIN [Suspect]
     Dosage: UNK
     Dates: start: 200906, end: 200909
  3. OCELLA [Suspect]
     Dosage: UNK
     Dates: start: 200906, end: 200909
  4. BUDEPRION [Concomitant]
     Dosage: 150 MG, UNK
  5. IBUPROFEN [Concomitant]
     Dosage: 800 MG, UNK
  6. HYDROCODONE W/APAP [Concomitant]
     Dosage: 5-500 MG
  7. FERROUS SULFATE [Concomitant]
     Dosage: 325 MG, UNK
  8. PROPOXYPHENE HYDROCHLORIDE W/PARACETAMOL [Concomitant]
     Dosage: 100-650 MG
  9. SULFAMETHOXAZOLE/TRIMETHOPRIM [Concomitant]
  10. HYDROXYZINE [Concomitant]
     Dosage: 25 MG, UNK
  11. ABILIFY [Concomitant]
     Dosage: 5 MG, UNK
  12. FLUOXETINE [Concomitant]
     Dosage: 20 MG, UNK

REACTIONS (5)
  - Pancreatitis [None]
  - Injury [None]
  - Pain [None]
  - Emotional distress [None]
  - Anxiety [None]
